FAERS Safety Report 21637498 (Version 2)
Quarter: 2022Q4

REPORT INFORMATION
  Report Type: Spontaneous
  Country: BR (occurrence: BR)
  Receive Date: 20221124
  Receipt Date: 20221214
  Transmission Date: 20230112
  Serious: Yes (Hospitalization, Other)
  Sender: FDA-Public Use
  Company Number: BR-JNJFOC-20221152566

PATIENT
  Sex: Male
  Weight: 110 kg

DRUGS (1)
  1. RISPERIDONE [Suspect]
     Active Substance: RISPERIDONE
     Indication: Schizophrenia
     Route: 065

REACTIONS (4)
  - Schizophrenia [Unknown]
  - Hospitalisation [Not Recovered/Not Resolved]
  - Drug ineffective [Unknown]
  - Treatment noncompliance [Unknown]
